FAERS Safety Report 8019104-X (Version None)
Quarter: 2012Q1

REPORT INFORMATION
  Report Type: 
  Country: None (occurrence: None)
  Receive Date: 20120103
  Receipt Date: 20111229
  Transmission Date: 20120608
  Serious: Yes (Hospitalization, Other)
  Sender: FDA-Public Use
  Company Number: US-SHIRE-ALL1-2011-05158

PATIENT
  Sex: Male
  Weight: 83.9 kg

DRUGS (1)
  1. ADDERALL XR 10 [Suspect]
     Indication: ATTENTION DEFICIT/HYPERACTIVITY DISORDER
     Dosage: 30 MG, 1X/DAY:QD
     Route: 048
     Dates: start: 20090101

REACTIONS (5)
  - INSOMNIA [None]
  - URINE AMPHETAMINE POSITIVE [None]
  - DRUG EFFECT DECREASED [None]
  - HEART RATE IRREGULAR [None]
  - DEPRESSION [None]
